FAERS Safety Report 9069623 (Version 1)
Quarter: 2013Q1

REPORT INFORMATION
  Report Type: Report from Study
  Country: US (occurrence: US)
  Receive Date: 20130131
  Receipt Date: 20130131
  Transmission Date: 20140127
  Serious: No
  Sender: FDA-Public Use
  Company Number: US-ABBOTT-12P-163-1000861-00

PATIENT
  Sex: Female

DRUGS (2)
  1. HUMIRA [Suspect]
     Indication: PSORIASIS
     Dosage: ON DAY 8
     Route: 058
     Dates: start: 20121011
  2. HUMIRA [Suspect]

REACTIONS (3)
  - Pyrexia [Unknown]
  - Nausea [Unknown]
  - Vomiting [Unknown]
